FAERS Safety Report 21311877 (Version 1)
Quarter: 2022Q3

REPORT INFORMATION
  Report Type: Spontaneous
  Country: CA (occurrence: None)
  Receive Date: 20220909
  Receipt Date: 20220909
  Transmission Date: 20221027
  Serious: Yes (Other)
  Sender: FDA-Public Use
  Company Number: 2022A307188

PATIENT
  Age: 47 Year
  Sex: Female

DRUGS (14)
  1. ROSUVASTATIN [Suspect]
     Active Substance: ROSUVASTATIN
     Dosage: 20.0MG ONCE/SINGLE ADMINISTRATION
     Route: 065
  2. RAMIPRIL [Suspect]
     Active Substance: RAMIPRIL
     Dosage: 2.5MG ONCE/SINGLE ADMINISTRATION
     Route: 048
  3. ROSUVASTATIN CALCIUM [Suspect]
     Active Substance: ROSUVASTATIN CALCIUM
     Indication: Blood cholesterol abnormal
     Dosage: 20.0MG ONCE/SINGLE ADMINISTRATION
     Route: 048
  4. ROSUVASTATIN CALCIUM [Suspect]
     Active Substance: ROSUVASTATIN CALCIUM
     Indication: Blood cholesterol abnormal
     Dosage: 20.0MG ONCE/SINGLE ADMINISTRATION
     Route: 048
  5. ROSUVASTATIN CALCIUM [Suspect]
     Active Substance: ROSUVASTATIN CALCIUM
     Indication: Blood cholesterol abnormal
     Dosage: ONCE/SINGLE ADMINISTRATION
     Route: 065
  6. ROSUVASTATIN CALCIUM [Suspect]
     Active Substance: ROSUVASTATIN CALCIUM
     Indication: Blood cholesterol abnormal
     Dosage: ONCE/SINGLE ADMINISTRATION
     Route: 065
  7. AFINITOR [Suspect]
     Active Substance: EVEROLIMUS
     Indication: Pancreatic neuroendocrine tumour metastatic
     Dosage: 10.0MG ONCE/SINGLE ADMINISTRATION
     Route: 048
  8. AFINITOR [Suspect]
     Active Substance: EVEROLIMUS
     Indication: Pancreatic neuroendocrine tumour metastatic
     Dosage: 1 EVERY 6 HOURS10.0MG ONCE/SINGLE ADMINISTRATION
     Route: 048
  9. SANDOSTATIN [Suspect]
     Active Substance: OCTREOTIDE ACETATE
     Indication: Pancreatic neuroendocrine tumour metastatic
     Dosage: 1 EVERY 1 MONTH
     Route: 065
  10. SUNITINIB MALATE [Suspect]
     Active Substance: SUNITINIB MALATE
     Indication: Pancreatic neuroendocrine tumour metastatic
     Route: 065
  11. ESOMEPRAZOLE MAGNESIUM [Concomitant]
     Active Substance: ESOMEPRAZOLE MAGNESIUM
     Indication: Pancreatic neuroendocrine tumour metastatic
  12. SYNTHROID [Concomitant]
     Active Substance: LEVOTHYROXINE SODIUM
     Route: 048
  13. VITAMIN D3 [Concomitant]
     Active Substance: CHOLECALCIFEROL
     Route: 065
  14. VITAMIN D3 [Concomitant]
     Active Substance: CHOLECALCIFEROL
     Route: 048

REACTIONS (40)
  - Anxiety [Recovered/Resolved]
  - Blood pressure diastolic decreased [Recovered/Resolved]
  - Blood pressure systolic increased [Recovered/Resolved]
  - Body temperature decreased [Recovered/Resolved]
  - Cough [Recovered/Resolved]
  - Dry skin [Recovered/Resolved]
  - Dysphagia [Recovered/Resolved]
  - Dysphonia [Recovered/Resolved]
  - Dyspnoea [Recovered/Resolved]
  - Erythema [Recovered/Resolved]
  - Hypotension [Recovered/Resolved]
  - Hypothyroidism [Recovered/Resolved]
  - Hypoxia [Recovered/Resolved]
  - Ingrowing nail [Recovered/Resolved]
  - Injection site hypersensitivity [Recovered/Resolved]
  - Injection site induration [Recovered/Resolved]
  - Injection site mass [Recovered/Resolved]
  - Injection site pain [Recovered/Resolved]
  - Injection site warmth [Recovered/Resolved]
  - Lung disorder [Recovered/Resolved]
  - Nasal discharge discolouration [Recovered/Resolved]
  - Muscle contractions involuntary [Recovered/Resolved]
  - Lung infiltration [Recovered/Resolved]
  - Nasopharyngitis [Recovered/Resolved]
  - Pancreatic neuroendocrine tumour [Recovered/Resolved]
  - Oropharyngeal pain [Recovered/Resolved]
  - Ovarian cyst [Recovered/Resolved]
  - Pneumonia [Recovered/Resolved]
  - Rhinorrhoea [Recovered/Resolved]
  - Skin discolouration [Recovered/Resolved]
  - Skin plaque [Recovered/Resolved]
  - Tenderness [Recovered/Resolved]
  - Neoplasm progression [Recovered/Resolved]
  - Abdominal pain upper [Recovered/Resolved]
  - Diabetes mellitus [Recovered/Resolved]
  - Eyelid oedema [Recovered/Resolved]
  - Musculoskeletal pain [Recovered/Resolved]
  - Fatigue [Recovered/Resolved]
  - Nephritic syndrome [Recovered/Resolved]
  - Needle issue [Recovered/Resolved]
